FAERS Safety Report 13114801 (Version 1)
Quarter: 2017Q1

REPORT INFORMATION
  Report Type: Spontaneous
  Country: BR (occurrence: BR)
  Receive Date: 20170113
  Receipt Date: 20170113
  Transmission Date: 20170428
  Serious: Yes (Hospitalization, Other)
  Sender: FDA-Public Use
  Company Number: BR-JNJFOC-20170108441

PATIENT
  Sex: Male

DRUGS (7)
  1. RISPERDAL [Suspect]
     Active Substance: RISPERIDONE
     Indication: EX-TOBACCO USER
     Route: 065
  2. HALDOL [Suspect]
     Active Substance: HALOPERIDOL
     Indication: GENERAL PHYSICAL CONDITION ABNORMAL
     Route: 065
  3. CHLORPROMAZINE HYDROCHLORIDE. [Concomitant]
     Active Substance: CHLORPROMAZINE HYDROCHLORIDE
     Route: 065
     Dates: start: 2003
  4. HALDOL [Suspect]
     Active Substance: HALOPERIDOL
     Indication: GENERAL PHYSICAL CONDITION ABNORMAL
     Route: 065
     Dates: start: 2003
  5. HALDOL [Suspect]
     Active Substance: HALOPERIDOL
     Indication: GENERAL PHYSICAL CONDITION ABNORMAL
     Route: 065
  6. HALDOL [Suspect]
     Active Substance: HALOPERIDOL
     Indication: GENERAL PHYSICAL CONDITION ABNORMAL
     Route: 065
     Dates: start: 2014
  7. RISPERDAL [Suspect]
     Active Substance: RISPERIDONE
     Indication: NERVOUSNESS
     Route: 065

REACTIONS (12)
  - Hospitalisation [Unknown]
  - Nervous system disorder [Unknown]
  - Off label use [Unknown]
  - Tremor [Unknown]
  - Delirium [Unknown]
  - Delusion [Unknown]
  - Oculogyric crisis [Unknown]
  - Hallucination [Unknown]
  - Eye movement disorder [Unknown]
  - Withdrawal syndrome [Unknown]
  - Product use issue [Unknown]
  - Depression [Unknown]
